FAERS Safety Report 9217318 (Version 2)
Quarter: 2013Q2

REPORT INFORMATION
  Report Type: Spontaneous
  Country: BR (occurrence: BR)
  Receive Date: 20130408
  Receipt Date: 20130507
  Transmission Date: 20140414
  Serious: Yes (Other)
  Sender: FDA-Public Use
  Company Number: BR-CELGENEUS-020-50794-13034728

PATIENT
  Age: 54 Year
  Sex: Male
  Weight: 75.6 kg

DRUGS (1)
  1. VIDAZA [Suspect]
     Indication: MYELODYSPLASTIC SYNDROME
     Route: 065
     Dates: start: 20101025, end: 20130319

REACTIONS (2)
  - Skin mass [Recovering/Resolving]
  - Contusion [Recovering/Resolving]
